FAERS Safety Report 12444684 (Version 2)
Quarter: 2016Q3

REPORT INFORMATION
  Report Type: Report from Study
  Country: CR (occurrence: CR)
  Receive Date: 20160607
  Receipt Date: 20160701
  Transmission Date: 20161109
  Serious: Yes (Other)
  Sender: FDA-Public Use
  Company Number: PHHY2016CR075598

PATIENT
  Age: 81 Year
  Sex: Female

DRUGS (2)
  1. EXFORGE [Suspect]
     Active Substance: AMLODIPINE BESYLATE\VALSARTAN
     Dosage: (AMLODIPINE 10 MG, VALSARTAN 320 MG)
     Route: 065
     Dates: start: 20160530
  2. EXFORGE [Suspect]
     Active Substance: AMLODIPINE BESYLATE\VALSARTAN
     Indication: PRODUCT USED FOR UNKNOWN INDICATION
     Dosage: (AMLODIPINE 10 MG, VALSARTAN 320 MG)
     Route: 065

REACTIONS (7)
  - Fall [Unknown]
  - Bone disorder [Unknown]
  - Abasia [Unknown]
  - Malaise [Unknown]
  - Hip fracture [Unknown]
  - Arthritis [Unknown]
  - Osteoporosis [Unknown]
